FAERS Safety Report 11562380 (Version 1)
Quarter: 2015Q3

REPORT INFORMATION
  Report Type: Spontaneous
  Country: US (occurrence: US)
  Receive Date: 20150916
  Receipt Date: 20150916
  Transmission Date: 20151125
  Serious: No
  Sender: FDA-Public Use
  Company Number: US-ELI_LILLY_AND_COMPANY-US200812000979

PATIENT
  Age: 72 Year
  Sex: Female

DRUGS (6)
  1. FORTEO [Suspect]
     Active Substance: TERIPARATIDE
     Dates: start: 20090107
  2. FORTEO [Suspect]
     Active Substance: TERIPARATIDE
     Dates: start: 200809
  3. FORTEO [Suspect]
     Active Substance: TERIPARATIDE
     Indication: OSTEOPOROSIS
     Dates: start: 200806, end: 2008
  4. CALCIUM [Concomitant]
     Active Substance: CALCIUM
     Dates: end: 200812
  5. FORTEO [Suspect]
     Active Substance: TERIPARATIDE
     Dates: end: 20081207
  6. VITAMIN D [Concomitant]
     Active Substance: CHOLECALCIFEROL
     Dates: end: 200812

REACTIONS (3)
  - Blood calcium increased [Recovered/Resolved]
  - Muscle spasms [Not Recovered/Not Resolved]
  - Nausea [Not Recovered/Not Resolved]

NARRATIVE: CASE EVENT DATE: 200809
